FAERS Safety Report 8515880-8 (Version None)
Quarter: 2012Q3

REPORT INFORMATION
  Report Type: 
  Country: None (occurrence: None)
  Receive Date: 20120717
  Receipt Date: 20120706
  Transmission Date: 20120928
  Serious: No
  Sender: FDA-Public Use
  Company Number: CA-JNJFOC-20120108563

PATIENT
  Sex: Female
  Weight: 68.2 kg

DRUGS (2)
  1. METHOTREXATE [Concomitant]
     Route: 030
  2. REMICADE [Suspect]
     Indication: RHEUMATOID ARTHRITIS
     Dosage: STARTED SINCE APPROXIMATELY 6 YEARS
     Route: 042

REACTIONS (1)
  - INFLUENZA [None]
